FAERS Safety Report 25721001 (Version 1)
Quarter: 2025Q3

REPORT INFORMATION
  Report Type: Spontaneous
  Country: US (occurrence: US)
  Receive Date: 20250825
  Receipt Date: 20250825
  Transmission Date: 20251020
  Serious: No
  Sender: SAGENT PHARMACEUTICALS
  Company Number: US-SAGENT PHARMACEUTICALS-2024SAG000142

PATIENT

DRUGS (2)
  1. METHYLPREDNISOLONE ACETATE [Suspect]
     Active Substance: METHYLPREDNISOLONE ACETATE
     Indication: Arthritis
     Route: 065
     Dates: start: 20240126
  2. METHYLPREDNISOLONE ACETATE [Suspect]
     Active Substance: METHYLPREDNISOLONE ACETATE
     Route: 065
     Dates: start: 20240510

REACTIONS (2)
  - Skin discolouration [Not Recovered/Not Resolved]
  - Superficial vein prominence [Not Recovered/Not Resolved]

NARRATIVE: CASE EVENT DATE: 20240127
